FAERS Safety Report 9656149 (Version 3)
Quarter: 2014Q1

REPORT INFORMATION
  Report Type: Spontaneous
  Country: US (occurrence: US)
  Receive Date: 20131030
  Receipt Date: 20140131
  Transmission Date: 20141002
  Serious: Yes (Other)
  Sender: FDA-Public Use
  Company Number: PHEH2013US022360

PATIENT
  Sex: Female
  Weight: 49.43 kg

DRUGS (8)
  1. RECLAST [Suspect]
     Indication: OSTEOPOROSIS
     Dosage: UNK YEARLY
     Route: 042
  2. RECLAST [Suspect]
     Dosage: UNK YEARLY
     Route: 042
  3. RECLAST [Suspect]
     Dosage: UNK YEARLY
     Route: 042
  4. RECLAST [Suspect]
     Dosage: UNK YEARLY
     Route: 042
  5. RECLAST [Suspect]
     Dosage: UNK YEARLY
     Route: 042
     Dates: start: 20130820
  6. FOSAMAX [Suspect]
     Indication: OSTEOPOROSIS
     Dosage: UNK
     Dates: start: 2008
  7. CALCIUM [Concomitant]
     Indication: OSTEOPOROSIS
     Dosage: UNK UKN, UNK
     Route: 048
  8. VITAMIN D [Concomitant]
     Dosage: UNK UKN, UNK

REACTIONS (7)
  - Fall [Unknown]
  - Ligament rupture [Unknown]
  - Scoliosis [Unknown]
  - Joint injury [Unknown]
  - Groin pain [Unknown]
  - Muscular weakness [Unknown]
  - Arthritis [Unknown]
